FAERS Safety Report 4411012-6 (Version None)
Quarter: 2004Q3

REPORT INFORMATION
  Report Type: 
  Country: None (occurrence: None)
  Receive Date: 20040726
  Receipt Date: 20040712
  Transmission Date: 20050211
  Serious: Yes (Death)
  Sender: FDA-Public Use
  Company Number: 000766

PATIENT
  Age: 69 Year
  Sex: Male

DRUGS (2)
  1. ZEVALIN [Suspect]
     Indication: NON-HODGKIN'S LYMPHOMA
     Dosage: SEE IMAGE, INTRAVENOUS
     Route: 042
     Dates: start: 20031222, end: 20031222
  2. ZEVALIN [Suspect]
     Indication: NON-HODGKIN'S LYMPHOMA
     Dosage: SEE IMAGE, INTRAVENOUS
     Route: 042
     Dates: start: 20031230, end: 20031230

REACTIONS (2)
  - PANCYTOPENIA [None]
  - SEPSIS [None]
